FAERS Safety Report 4296820-7 (Version None)
Quarter: 2004Q1

REPORT INFORMATION
  Report Type: 
  Country: None (occurrence: None)
  Receive Date: 20040126
  Receipt Date: 20030905
  Transmission Date: 20041129
  Serious: No
  Sender: FDA-Public Use
  Company Number: USA030946452

PATIENT
  Age: 39 Year
  Sex: Male
  Weight: 90 kg

DRUGS (12)
  1. STRATTERA [Suspect]
     Indication: ATTENTION DEFICIT/HYPERACTIVITY DISORDER
     Dosage: 40 MG/DAY
     Dates: start: 20030902, end: 20030904
  2. ZOLOFT [Concomitant]
  3. NASACORT (BUDESONIDE) [Concomitant]
  4. CLONAZEPAM [Concomitant]
  5. SENNA [Concomitant]
  6. GEODON [Concomitant]
  7. VALTREX [Concomitant]
  8. DOCUSATE [Concomitant]
  9. ZOVIRAX [Concomitant]
  10. MARY MAGIC MOUTH WASH [Concomitant]
  11. NICODERM [Concomitant]
  12. ADDERALL 10 [Concomitant]

REACTIONS (5)
  - AGITATION [None]
  - ANGER [None]
  - BIPOLAR DISORDER [None]
  - PSYCHOMOTOR HYPERACTIVITY [None]
  - SUICIDAL IDEATION [None]
